FAERS Safety Report 5029032-X (Version None)
Quarter: 2006Q2

REPORT INFORMATION
  Report Type: 
  Country: None (occurrence: None)
  Receive Date: 20060613
  Receipt Date: 20060530
  Transmission Date: 20061013
  Serious: Yes (Life-Threatening)
  Sender: FDA-Public Use
  Company Number: 2006RR-02461

PATIENT
  Age: 15 Year
  Sex: Female

DRUGS (1)
  1. FLUOXETINE [Suspect]
     Indication: DEPRESSION
     Dosage: 20MG, ORAL
     Route: 048
     Dates: start: 20051018, end: 20060504

REACTIONS (2)
  - INTENTIONAL SELF-INJURY [None]
  - LACERATION [None]
